FAERS Safety Report 5498257-1 (Version None)
Quarter: 2007Q4

REPORT INFORMATION
  Report Type: 
  Country: None (occurrence: None)
  Receive Date: 20071025
  Receipt Date: 20070420
  Transmission Date: 20080405
  Serious: No
  Sender: FDA-Public Use
  Company Number: A0648191A

PATIENT
  Age: 73 Year
  Sex: Female

DRUGS (10)
  1. ADVAIR DISKUS 100/50 [Suspect]
     Indication: ASTHMA
     Dosage: 1PUFF TWICE PER DAY
     Route: 055
     Dates: start: 20070301
  2. ASMANEX TWISTHALER [Suspect]
     Indication: ASTHMA
     Route: 065
  3. COZAAR [Concomitant]
  4. SYNTHROID [Concomitant]
  5. NORVASC [Concomitant]
  6. PROZAC [Concomitant]
  7. PREMARIN [Concomitant]
  8. KLOR-CON [Concomitant]
  9. ALPRAZOLAM [Concomitant]
  10. UNKNOWN MEDICATION [Concomitant]

REACTIONS (1)
  - RASH [None]
